FAERS Safety Report 6905094-7 (Version None)
Quarter: 2010Q3

REPORT INFORMATION
  Report Type: 
  Country: None (occurrence: None)
  Receive Date: 20100804
  Receipt Date: 20090911
  Transmission Date: 20110219
  Serious: No
  Sender: FDA-Public Use
  Company Number: US-PFIZER INC-2009245921

PATIENT
  Sex: Male

DRUGS (6)
  1. LYRICA [Suspect]
     Indication: SURGERY
     Dosage: UNK
     Dates: start: 20090423, end: 20090714
  2. LYRICA [Suspect]
     Indication: NERVE COMPRESSION
  3. DAYPRO [Concomitant]
     Dosage: UNK
  4. LISINOPRIL [Concomitant]
     Dosage: UNK
  5. LIPITOR [Concomitant]
     Indication: HYPERTENSION
  6. LIPITOR [Concomitant]
     Indication: BLOOD CHOLESTEROL INCREASED

REACTIONS (1)
  - DRUG SCREEN FALSE POSITIVE [None]
